FAERS Safety Report 6129830-5 (Version None)
Quarter: 2009Q1

REPORT INFORMATION
  Report Type: 
  Country: None (occurrence: None)
  Receive Date: 20090324
  Receipt Date: 20090324
  Transmission Date: 20090719
  Serious: Yes (Death, Other)
  Sender: FDA-Public Use
  Company Number: PHHO2004IT05405

PATIENT
  Sex: Female
  Weight: 85 kg

DRUGS (3)
  1. CGS 20267 T30748+ [Suspect]
     Indication: BREAST CANCER
     Dosage: 2.5 MG, QD
     Route: 048
     Dates: start: 20020707
  2. ISOPTIN RR [Concomitant]
     Indication: MYOCARDIAL INFARCTION
     Dates: start: 19770101
  3. MODURETIC 5-50 [Concomitant]
     Indication: HYPERTENSION
     Dates: start: 19770101

REACTIONS (2)
  - DEATH [None]
  - MYOCARDIAL INFARCTION [None]
